FAERS Safety Report 9698133 (Version 4)
Quarter: 2014Q2

REPORT INFORMATION
  Report Type: Report from Study
  Country: FR (occurrence: FR)
  Receive Date: 20131120
  Receipt Date: 20140506
  Transmission Date: 20141212
  Serious: Yes (Life-Threatening, Hospitalization)
  Sender: FDA-Public Use
  Company Number: FR-ROCHE-1306374

PATIENT
  Age: 52 Year
  Sex: Male
  Weight: 105 kg

DRUGS (4)
  1. OBINUTUZUMAB [Suspect]
     Indication: CHRONIC LYMPHOCYTIC LEUKAEMIA
     Dosage: 25MG ON 14/NOV/2013 AND 975MG ON 15/NOV/2013. PERMANENTLY DISCONTINUED
     Route: 042
     Dates: start: 20131114, end: 20131115
  2. OBINUTUZUMAB [Suspect]
     Indication: NON-HODGKIN^S LYMPHOMA
  3. LODOZ [Concomitant]
  4. FENOFIBRATE [Concomitant]

REACTIONS (1)
  - Cytokine release syndrome [Recovered/Resolved]
